FAERS Safety Report 10619382 (Version 1)
Quarter: 2014Q4

REPORT INFORMATION
  Report Type: Report from Study
  Country: AR (occurrence: AR)
  Receive Date: 20141202
  Receipt Date: 20141202
  Transmission Date: 20150529
  Serious: Yes (Hospitalization)
  Sender: FDA-Public Use
  Company Number: PHHY2014AR157438

PATIENT
  Sex: Female

DRUGS (2)
  1. ETORICOXIB [Concomitant]
     Active Substance: ETORICOXIB
     Indication: OSTEOARTHRITIS
     Route: 065
  2. EXFORGE [Suspect]
     Active Substance: AMLODIPINE BESYLATE\VALSARTAN
     Indication: HYPERTENSION
     Dosage: 1 DF, QD
     Route: 048

REACTIONS (1)
  - Breast cancer [Recovering/Resolving]
